FAERS Safety Report 6582049-6 (Version None)
Quarter: 2010Q1

REPORT INFORMATION
  Report Type: 
  Country: None (occurrence: None)
  Receive Date: 20100215
  Receipt Date: 20100211
  Transmission Date: 20100710
  Serious: Yes (Other)
  Sender: FDA-Public Use
  Company Number: DE-AMGEN-UK378886

PATIENT
  Sex: Female
  Weight: 105 kg

DRUGS (3)
  1. NPLATE [Suspect]
     Indication: IDIOPATHIC THROMBOCYTOPENIC PURPURA
     Route: 058
     Dates: start: 20090618
  2. PREDNISOLON [Concomitant]
     Dates: start: 20090618
  3. MYCOPHENOLATE MOFETIL [Concomitant]
     Dates: start: 20090618, end: 20090718

REACTIONS (2)
  - PLATELET COUNT DECREASED [None]
  - THERAPEUTIC RESPONSE DECREASED [None]
